FAERS Safety Report 12186812 (Version 1)
Quarter: 2016Q1

REPORT INFORMATION
  Report Type: Spontaneous
  Country: US (occurrence: None)
  Receive Date: 20160316
  Receipt Date: 20160316
  Transmission Date: 20160526
  Serious: Yes (Hospitalization)
  Sender: FDA-Public Use
  Company Number: None

PATIENT
  Age: 13 Year
  Sex: Male
  Weight: 61.8 kg

DRUGS (6)
  1. VINCRISTINE SULFATE. [Suspect]
     Active Substance: VINCRISTINE SULFATE
     Dates: end: 20160314
  2. MERCAPTOPURINE. [Suspect]
     Active Substance: MERCAPTOPURINE
  3. CYCLOPHOSPHAMIDE. [Suspect]
     Active Substance: CYCLOPHOSPHAMIDE
     Dates: end: 20160222
  4. CYTARABINE. [Suspect]
     Active Substance: CYTARABINE
     Dates: end: 20160303
  5. ONCASPAR [Suspect]
     Active Substance: PEGASPARGASE
     Dates: end: 20160307
  6. METHOTREXATE [Suspect]
     Active Substance: METHOTREXATE
     Dates: end: 20160314

REACTIONS (5)
  - Febrile neutropenia [None]
  - Muscular weakness [None]
  - Hepatobiliary disease [None]
  - Back pain [None]
  - Mobility decreased [None]

NARRATIVE: CASE EVENT DATE: 20160308
